FAERS Safety Report 7909243-3 (Version None)
Quarter: 2011Q4

REPORT INFORMATION
  Report Type: 
  Country: None (occurrence: None)
  Receive Date: 20111111
  Receipt Date: 20111107
  Transmission Date: 20120403
  Serious: Yes (Hospitalization)
  Sender: FDA-Public Use
  Company Number: DK-ASTELLAS-2011EU000942

PATIENT
  Age: 52 Year
  Sex: Male

DRUGS (2)
  1. PROGRAF [Suspect]
     Dosage: 30 MG, OTHER
     Route: 065
     Dates: start: 20110216
  2. PROGRAF [Suspect]
     Indication: HEART TRANSPLANT
     Dosage: 20 MG, OTHER
     Route: 065
     Dates: start: 20110215

REACTIONS (7)
  - MALAISE [None]
  - HEADACHE [None]
  - INFLUENZA LIKE ILLNESS [None]
  - TREMOR [None]
  - CHILLS [None]
  - ACCIDENTAL OVERDOSE [None]
  - BLOOD PRESSURE INCREASED [None]
